FAERS Safety Report 4860730-4 (Version None)
Quarter: 2005Q4

REPORT INFORMATION
  Report Type: 
  Country: None (occurrence: None)
  Receive Date: 20051216
  Receipt Date: 20051216
  Transmission Date: 20060501
  Serious: No
  Sender: FDA-Public Use
  Company Number: None

PATIENT
  Sex: Female
  Weight: 77.4 kg

DRUGS (4)
  1. CYCLOPHOSPHAMIDE [Suspect]
     Indication: BREAST CANCER
     Dosage: SEE IMAGE
     Route: 042
     Dates: start: 20050421, end: 20050602
  2. CYCLOPHOSPHAMIDE [Suspect]
     Indication: BREAST CANCER
     Dosage: SEE IMAGE
     Route: 042
     Dates: start: 20050602
  3. DOXORUBICIN [Suspect]
     Dosage: SEE IMAGE
     Route: 042
     Dates: start: 20050421, end: 20050602
  4. DOXORUBICIN [Suspect]
     Dosage: SEE IMAGE
     Route: 042
     Dates: start: 20050602

REACTIONS (21)
  - ASTHENIA [None]
  - BENIGN BREAST NEOPLASM [None]
  - BIOPSY BREAST [None]
  - BLOOD CREATINE PHOSPHOKINASE INCREASED [None]
  - BLOOD CREATINE PHOSPHOKINASE MB INCREASED [None]
  - CARDIAC FAILURE CONGESTIVE [None]
  - CARDIOMYOPATHY [None]
  - CHEST PAIN [None]
  - COUGH [None]
  - DEHYDRATION [None]
  - DYSARTHRIA [None]
  - DYSPNOEA [None]
  - HYPERTENSION [None]
  - HYPOTHYROIDISM [None]
  - MENTAL STATUS CHANGES [None]
  - MITRAL VALVE DISEASE [None]
  - MITRAL VALVE INCOMPETENCE [None]
  - OEDEMA PERIPHERAL [None]
  - SWELLING FACE [None]
  - VENTRICULAR HYPOKINESIA [None]
  - WOUND DEHISCENCE [None]
